FAERS Safety Report 21405684 (Version 2)
Quarter: 2022Q4

REPORT INFORMATION
  Report Type: Spontaneous
  Country: AT (occurrence: AT)
  Receive Date: 20221004
  Receipt Date: 20221027
  Transmission Date: 20230112
  Serious: Yes (Other)
  Sender: FDA-Public Use
  Company Number: AT-CELLTRION INC.-2022AT015868

PATIENT

DRUGS (10)
  1. INFLIXIMAB [Suspect]
     Active Substance: INFLIXIMAB
     Indication: Sarcoidosis
     Dosage: 5 MG/KG
     Dates: start: 20220919
  2. INFLIXIMAB [Suspect]
     Active Substance: INFLIXIMAB
     Indication: Hypercalcaemia
     Dosage: UNK
     Dates: start: 20221004
  3. EZETIMIB +PHARMA [Concomitant]
     Dosage: EZETIMIB +PH TBL 10 MG, DAILY,0-0-1-0
  4. SODIUM BICARBONATE [Concomitant]
     Active Substance: SODIUM BICARBONATE
     Dosage: NEPHROTRANS MSR WKPS, 500 MG, DAILY, 1-0-0-0
  5. BISOPROLOL FUMARATE [Concomitant]
     Active Substance: BISOPROLOL FUMARATE
     Dosage: CONCOR FTBL, 5 MG, DAILY, 1-0-0-0
  6. LINAGLIPTIN [Concomitant]
     Active Substance: LINAGLIPTIN
     Dosage: TRAJENTA FTBL, 5 MG, DAILY, 1-0-0-0
  7. LISINOPRIL/HCT ACTAVIS [Concomitant]
     Dosage: LISINOPRIL/HCT ACT 10/12,5 MG, DAILY, 1-0-0-0
  8. TOUJEO [Concomitant]
     Active Substance: INSULIN GLARGINE
     Dosage: TOUJEO 300E/ML SOLPEN 1,5ML 1,5 ML 0-0-10 IE
  9. PANTOPRAZOLE SODIUM [Concomitant]
     Active Substance: PANTOPRAZOLE SODIUM
     Dosage: PANTOLOC FTBL, 20 MG, DAILY, 1-0-0-0
  10. HUMALOG HD KWIKPEN [Concomitant]
     Dosage: HUMALOG 100E/ML KWIKPEN 3ML 3 ML BEFORE BREAKFAST BZ { 90 MG%: 0 BZ 91-150 MG%: 2IE BZ 151 - 204 MG%

REACTIONS (3)
  - Sarcoidosis [Unknown]
  - Hypercalcaemia [Unknown]
  - Off label use [Unknown]
